FAERS Safety Report 10921185 (Version 1)
Quarter: 2015Q1

REPORT INFORMATION
  Report Type: Spontaneous
  Country: FR (occurrence: None)
  Receive Date: 20150312
  Receipt Date: 20150312
  Transmission Date: 20150721
  Serious: Yes (Hospitalization)
  Sender: FDA-Public Use
  Company Number: 2775018

PATIENT
  Age: 4 Year
  Sex: Male
  Weight: 23.5 kg

DRUGS (12)
  1. TARGOCID [Concomitant]
     Active Substance: TEICOPLANIN
  2. CYTARABINE. [Suspect]
     Active Substance: CYTARABINE
     Indication: CHEMOTHERAPY
     Dates: start: 20141217
  3. VINCRISTINE SULFATE. [Suspect]
     Active Substance: VINCRISTINE SULFATE
     Indication: CHEMOTHERAPY
     Route: 048
     Dates: start: 20141216
  4. TAZOCILLINE [Concomitant]
     Active Substance: PIPERACILLIN SODIUM\TAZOBACTAM SODIUM
  5. METHOTREXATE [Suspect]
     Active Substance: METHOTREXATE
     Indication: CHEMOTHERAPY
     Route: 041
     Dates: start: 20141216
  6. ZOPHREN /00955301/ [Suspect]
     Active Substance: ONDANSETRON
     Indication: CHEMOTHERAPY
     Route: 048
     Dates: start: 20141226
  7. PERFALGAN [Concomitant]
     Active Substance: ACETAMINOPHEN
  8. DEXAMETHASONE. [Suspect]
     Active Substance: DEXAMETHASONE
     Indication: CHEMOTHERAPY
     Route: 048
     Dates: start: 20141216
  9. AMIKLIN /00391001/ [Concomitant]
     Active Substance: AMIKACIN SULFATE
  10. HYDROCORTISONE HEMISUCCINATE [Suspect]
     Active Substance: HYDROCORTISONE HEMISUCCINATE
     Indication: CHEMOTHERAPY
     Dates: start: 20141217
  11. ASPARAGINASE [Suspect]
     Active Substance: ASPARAGINASE
     Indication: CHEMOTHERAPY
     Route: 030
     Dates: start: 20141219
  12. BACTRIM [Concomitant]
     Active Substance: SULFAMETHOXAZOLE\TRIMETHOPRIM

REACTIONS (2)
  - Febrile bone marrow aplasia [None]
  - Ear infection [None]

NARRATIVE: CASE EVENT DATE: 20150106
